FAERS Safety Report 4928693-0 (Version None)
Quarter: 2006Q1

REPORT INFORMATION
  Report Type: 
  Country: None (occurrence: None)
  Receive Date: 20060227
  Receipt Date: 20060227
  Transmission Date: 20060701
  Serious: Yes (Life-Threatening)
  Sender: FDA-Public Use
  Company Number: None

PATIENT
  Age: 59 Year
  Sex: Female
  Weight: 132 kg

DRUGS (8)
  1. ISOSULFAN BLUE DYE [Suspect]
     Indication: DIAGNOSTIC PROCEDURE
     Dates: start: 20060118, end: 20060118
  2. FENTANYL CITRATE [Concomitant]
  3. PROPOFOL [Concomitant]
  4. SUCINYLCHOLINE [Concomitant]
  5. ROCURONIUM [Concomitant]
  6. OXYGEN AND NITROUS [Concomitant]
  7. ISOFLURANCE [Concomitant]
  8. DECADRON SRC [Concomitant]

REACTIONS (3)
  - BRADYCARDIA [None]
  - HYPOTENSION [None]
  - PROCEDURAL COMPLICATION [None]
